FAERS Safety Report 6833474-7 (Version None)
Quarter: 2010Q3

REPORT INFORMATION
  Report Type: 
  Country: None (occurrence: None)
  Receive Date: 20100712
  Receipt Date: 20070326
  Transmission Date: 20110219
  Serious: No
  Sender: FDA-Public Use
  Company Number: US-PFIZER INC-2007025761

PATIENT
  Sex: Female
  Weight: 57.61 kg

DRUGS (4)
  1. CHANTIX [Suspect]
     Indication: ERECTILE DYSFUNCTION
     Dates: start: 20070117
  2. LISINOPRIL [Concomitant]
  3. SYNTHROID [Concomitant]
  4. ZETIA [Concomitant]

REACTIONS (4)
  - ABNORMAL DREAMS [None]
  - INSOMNIA [None]
  - PALPITATIONS [None]
  - WEIGHT INCREASED [None]
